FAERS Safety Report 21804035 (Version 5)
Quarter: 2023Q2

REPORT INFORMATION
  Report Type: Report from Study
  Country: US (occurrence: US)
  Receive Date: 20230102
  Receipt Date: 20230428
  Transmission Date: 20230722
  Serious: Yes (Hospitalization, Other)
  Sender: FDA-Public Use
  Company Number: US-ABBVIE-4255090

PATIENT
  Age: 58 Year
  Sex: Female
  Weight: 88 kg

DRUGS (8)
  1. IMBRUVICA [Suspect]
     Active Substance: IBRUTINIB
     Indication: Chronic lymphocytic leukaemia
     Route: 048
     Dates: start: 20201015, end: 202210
  2. IMBRUVICA [Suspect]
     Active Substance: IBRUTINIB
     Indication: Chronic lymphocytic leukaemia
     Route: 048
     Dates: start: 202210
  3. ACYCLOVIR [Concomitant]
     Active Substance: ACYCLOVIR
     Indication: Immune enhancement therapy
  4. LIPITOR [Concomitant]
     Active Substance: ATORVASTATIN CALCIUM
     Indication: Blood cholesterol abnormal
  5. VITAMIN D [Concomitant]
     Active Substance: VITAMIN D NOS
     Indication: Product used for unknown indication
  6. COVID-19 VACCINE NOS [Suspect]
     Active Substance: COVID-19 VACCINE NOS
     Indication: COVID-19 immunisation
     Dosage: FIRST DOSE; FREQUENCY: ONE TIME ONCE
     Route: 030
     Dates: start: 20220501, end: 20220501
  7. COVID-19 VACCINE NOS [Suspect]
     Active Substance: COVID-19 VACCINE NOS
     Indication: COVID-19 immunisation
     Dosage: SECOND DOSE; FREQUENCY: ONE TIME ONCE
     Route: 030
     Dates: start: 202208, end: 202208
  8. COVID-19 VACCINE NOS [Suspect]
     Active Substance: COVID-19 VACCINE NOS
     Indication: COVID-19 immunisation
     Dosage: THIRD DOSE; FREQUENCY: ONE TIME ONCE
     Route: 030

REACTIONS (17)
  - Monoplegia [Recovered/Resolved]
  - Fatigue [Unknown]
  - Cerebrovascular accident [Unknown]
  - Fall [Unknown]
  - White blood cell count abnormal [Unknown]
  - Dehydration [Unknown]
  - Drug specific antibody present [Unknown]
  - Fall [Recovered/Resolved]
  - Pain in extremity [Unknown]
  - Muscle strain [Recovered/Resolved]
  - Diarrhoea [Recovered/Resolved]
  - Dizziness [Recovered/Resolved]
  - Lactose intolerance [Unknown]
  - Fall [Recovered/Resolved]
  - Gait inability [Recovered/Resolved]
  - Emotional disorder [Unknown]
  - Loss of personal independence in daily activities [Unknown]

NARRATIVE: CASE EVENT DATE: 20221031
